FAERS Safety Report 5941663-9 (Version None)
Quarter: 2008Q4

REPORT INFORMATION
  Report Type: 
  Country: None (occurrence: None)
  Receive Date: 20081104
  Receipt Date: 20081104
  Transmission Date: 20090506
  Serious: No
  Sender: FDA-Public Use
  Company Number: None

PATIENT
  Age: 40 Year
  Sex: Male
  Weight: 147.419 kg

DRUGS (1)
  1. ABILIFY [Suspect]
     Indication: DEPRESSION
     Dosage: ONCE A DAY PO, DATES ARE APPROX.
     Route: 048
     Dates: start: 20050812, end: 20080403

REACTIONS (12)
  - BLOOD GLUCOSE INCREASED [None]
  - HEPATIC STEATOSIS [None]
  - ILL-DEFINED DISORDER [None]
  - INSULIN RESISTANCE [None]
  - METABOLIC SYNDROME [None]
  - MIDDLE INSOMNIA [None]
  - OBESITY [None]
  - OEDEMA PERIPHERAL [None]
  - QUALITY OF LIFE DECREASED [None]
  - SLEEP APNOEA SYNDROME [None]
  - TYPE 2 DIABETES MELLITUS [None]
  - WEIGHT INCREASED [None]
